FAERS Safety Report 16712791 (Version 2)
Quarter: 2022Q1

REPORT INFORMATION
  Report Type: Spontaneous
  Country: GB (occurrence: GB)
  Receive Date: 20190817
  Receipt Date: 20220208
  Transmission Date: 20220424
  Serious: Yes (Other)
  Sender: FDA-Public Use
  Company Number: GB-AUROBINDO-AUR-APL-2014-07113

PATIENT
  Age: 35 Year
  Sex: Female

DRUGS (7)
  1. ONDANSETRON [Suspect]
     Active Substance: ONDANSETRON
     Indication: Prophylaxis
     Dosage: 4 MILLIGRAM
     Route: 042
  2. PHENYLEPHRINE [Suspect]
     Active Substance: PHENYLEPHRINE HYDROCHLORIDE
     Indication: Prophylaxis
     Dosage: UNK, ATTACHED TO THE INTRAVENOUS LINE VIA A Y-CONNECTOR
     Route: 041
  3. CEFUROXIME [Suspect]
     Active Substance: CEFUROXIME
     Indication: Prophylaxis
     Dosage: 1.5 GRAM
     Route: 042
  4. BUPIVACAINE HYDROCHLORIDE [Suspect]
     Active Substance: BUPIVACAINE HYDROCHLORIDE
     Indication: Spinal anaesthesia
     Dosage: 2.8 MILLILITER
     Route: 065
  5. DIAMORPHINE [Suspect]
     Active Substance: DIAMORPHINE
     Indication: Spinal anaesthesia
     Dosage: 400 MICROGRAM
     Route: 065
  6. CALCIUM CHLORIDE\POTASSIUM CHLORIDE\SODIUM CHLORIDE\SODIUM LACTATE [Suspect]
     Active Substance: CALCIUM CHLORIDE\POTASSIUM CHLORIDE\SODIUM CHLORIDE\SODIUM LACTATE
     Indication: Product used for unknown indication
     Dosage: UNK, RUNNING VIA A PERIPHERAL CANNULA
     Route: 041
  7. SYNTOCINON [Concomitant]
     Active Substance: OXYTOCIN
     Indication: Product used for unknown indication
     Dosage: 5 INTERNATIONAL UNIT
     Route: 042

REACTIONS (2)
  - Ventricular tachycardia [Recovered/Resolved]
  - Exposure during pregnancy [Recovered/Resolved]
